FAERS Safety Report 14845182 (Version 1)
Quarter: 2018Q2

REPORT INFORMATION
  Report Type: Spontaneous
  Country: ES (occurrence: ES)
  Receive Date: 20180504
  Receipt Date: 20180504
  Transmission Date: 20180711
  Serious: Yes (Hospitalization)
  Sender: FDA-Public Use
  Company Number: ES-TEVA-2018-ES-888043

PATIENT
  Age: 58 Year
  Sex: Male

DRUGS (10)
  1. PARACETAMOL (12A) [Concomitant]
     Active Substance: ACETAMINOPHEN
     Dates: start: 20170901, end: 20170901
  2. FENTANYL. [Suspect]
     Active Substance: FENTANYL
     Indication: BACK PAIN
     Route: 062
  3. MYFORTIC 180 MG COMPRIMIDOS GASTRORRESISTENTES [Concomitant]
     Dosage: 2-0-1
     Route: 048
     Dates: start: 20150601
  4. TRAMADOL. [Concomitant]
     Active Substance: TRAMADOL
     Dates: start: 20170901, end: 20170901
  5. INSULINA ABASAGLAR [Concomitant]
     Dosage: 32 UI EN CENA
     Route: 058
     Dates: start: 20160101
  6. AMLODIPINO 5 [Concomitant]
     Dosage: 1-0-0
     Route: 048
     Dates: start: 20150601
  7. DIAZEPAM. [Concomitant]
     Active Substance: DIAZEPAM
     Dosage: 1-0-1
     Route: 048
     Dates: start: 20170901, end: 20170901
  8. METAMIZOL (111A) [Concomitant]
     Active Substance: METAMIZOL SODIUM
     Dosage: 2GR/8H
     Dates: start: 20170901, end: 20170901
  9. ADVAGRAF 3 MG CAPSULAS DURAS DE LIBERACION PROLONGADA [Concomitant]
     Dosage: SP
     Dates: start: 20150601
  10. PREDNISONA ALONGA 5 MG COMPRIMIDOS, 30 COMPRIMIDOS [Concomitant]
     Dosage: 1-0-0
     Route: 048
     Dates: start: 20150601

REACTIONS (1)
  - Ileus paralytic [Recovered/Resolved]

NARRATIVE: CASE EVENT DATE: 20170901
